FAERS Safety Report 15560117 (Version 1)
Quarter: 2018Q4

REPORT INFORMATION
  Report Type: Spontaneous
  Country: US (occurrence: US)
  Receive Date: 20181028
  Receipt Date: 20181028
  Transmission Date: 20190205
  Serious: Yes (Life-Threatening, Other)
  Sender: FDA-Public Use
  Company Number: None

PATIENT
  Age: 34 Year
  Sex: Female
  Weight: 76.5 kg

DRUGS (5)
  1. BIOTIN [Concomitant]
     Active Substance: BIOTIN
  2. MELATONIN [Concomitant]
     Active Substance: MELATONIN
  3. WOMENS ROGAINE UNSCENTED [Suspect]
     Active Substance: MINOXIDIL
     Indication: ALOPECIA
     Dosage: .5 CAPFUL; DAILY TOPICAL?
     Route: 061
     Dates: start: 20181023, end: 20181025
  4. VITAMIN E [Concomitant]
     Active Substance: .ALPHA.-TOCOPHEROL
  5. PRIMROSE EVENING OIL [Concomitant]

REACTIONS (10)
  - Lip dry [None]
  - Skin irritation [None]
  - Skin burning sensation [None]
  - Ear swelling [None]
  - Lip exfoliation [None]
  - Scab [None]
  - Pruritus [None]
  - Erythema [None]
  - Rash generalised [None]
  - Lymphadenopathy [None]

NARRATIVE: CASE EVENT DATE: 20181024
